FAERS Safety Report 9440828 (Version 2)
Quarter: 2013Q3

REPORT INFORMATION
  Report Type: Spontaneous
  Country: US (occurrence: US)
  Receive Date: 20130805
  Receipt Date: 20130829
  Transmission Date: 20140515
  Serious: Yes (Other)
  Sender: FDA-Public Use
  Company Number: US-JNJFOC-20130716036

PATIENT
  Age: 1 Month
  Sex: Male
  Weight: 111.13 kg

DRUGS (17)
  1. STELARA [Suspect]
     Indication: PSORIASIS
     Route: 058
     Dates: start: 20101207
  2. LISINOPRIL [Concomitant]
     Route: 065
  3. ADVAIR [Concomitant]
     Route: 065
  4. AZELASTINE [Concomitant]
     Route: 065
  5. ATENOLOL [Concomitant]
     Route: 065
  6. BUSPIRONE [Concomitant]
     Route: 065
  7. COMBIVENT [Concomitant]
     Route: 065
  8. GABAPENTIN [Concomitant]
     Route: 065
  9. CRESTOR [Concomitant]
     Route: 065
  10. NORTRIPTYLINE [Concomitant]
     Route: 065
  11. OMEPRAZOLE [Concomitant]
     Route: 065
  12. PATANASE [Concomitant]
     Route: 065
  13. ROPINIROLE [Concomitant]
     Route: 065
  14. SPIRIVA [Concomitant]
     Route: 065
  15. TIZANIDINE [Concomitant]
     Route: 065
  16. TRAVATAN [Concomitant]
     Route: 065
  17. TRIAMCINOLONE [Concomitant]
     Route: 065

REACTIONS (1)
  - Hepatitis C virus test positive [Unknown]
